FAERS Safety Report 14566165 (Version 1)
Quarter: 2018Q1

REPORT INFORMATION
  Report Type: Spontaneous
  Country: AU (occurrence: AU)
  Receive Date: 20180223
  Receipt Date: 20180223
  Transmission Date: 20180509
  Serious: Yes (Other)
  Sender: FDA-Public Use
  Company Number: AU-BEH-2017085431

PATIENT
  Age: 26 Year
  Sex: Female
  Weight: 41.2 kg

DRUGS (7)
  1. HIZENTRA [Suspect]
     Active Substance: HUMAN IMMUNOGLOBULIN G
     Indication: PRIMARY IMMUNODEFICIENCY SYNDROME
     Dosage: 20 G, UNK
     Route: 065
     Dates: start: 20171120
  2. QUETIAPINE. [Concomitant]
     Active Substance: QUETIAPINE
     Dosage: 100 MG, OD, NOCTE
     Route: 065
  3. VITAMIN D                          /00107901/ [Concomitant]
     Active Substance: ERGOCALCIFEROL
     Dosage: UNK, OD, 2 TABS
     Route: 065
  4. CALTRATE                           /00944201/ [Concomitant]
     Active Substance: CALCIUM CARBONATE\CHOLECALCIFEROL
     Dosage: UNK, OD, 2 TABS
     Route: 065
  5. SYMBICORT [Concomitant]
     Active Substance: BUDESONIDE\FORMOTEROL FUMARATE DIHYDRATE
     Dosage: UNK, PRN
     Route: 065
  6. SALBUTAMOL [Concomitant]
     Active Substance: ALBUTEROL
     Dosage: 200 ?G, PRN
     Route: 065
  7. HIZENTRA [Suspect]
     Active Substance: HUMAN IMMUNOGLOBULIN G
     Dosage: 2G EVERY 5 DAYS
     Route: 058
     Dates: start: 20170912, end: 20171104

REACTIONS (4)
  - Type IV hypersensitivity reaction [Recovered/Resolved]
  - Skin lesion [Recovered/Resolved]
  - Infusion site rash [Recovered/Resolved]
  - Infusion site eczema [Recovered/Resolved]

NARRATIVE: CASE EVENT DATE: 2017
